FAERS Safety Report 18500307 (Version 4)
Quarter: 2022Q1

REPORT INFORMATION
  Report Type: Report from Study
  Country: TH (occurrence: TH)
  Receive Date: 20201113
  Receipt Date: 20220312
  Transmission Date: 20220423
  Serious: Yes (Other)
  Sender: FDA-Public Use
  Company Number: None

PATIENT
  Age: 59 Year
  Sex: Male
  Weight: 70.6 kg

DRUGS (16)
  1. ENTRESTO [Suspect]
     Active Substance: SACUBITRIL\VALSARTAN
     Indication: Cardiac failure
     Dosage: 0.5 DF, BID AFTER MEAL (200 MG) 2 PC
     Route: 048
  2. ENTRESTO [Suspect]
     Active Substance: SACUBITRIL\VALSARTAN
     Dosage: UNK UNK, BID (200 MG A HALF OF TABLET)
     Route: 048
  3. ATORVASTATIN [Suspect]
     Active Substance: ATORVASTATIN
     Indication: Product used for unknown indication
     Dosage: 40 MG, QD (1 TAB, HS), AT BEDTIME
     Route: 048
  4. CLOPIDOGREL [Suspect]
     Active Substance: CLOPIDOGREL BISULFATE
     Indication: Product used for unknown indication
     Dosage: 75 MG (1 TAB, 1 PC)
     Route: 048
  5. ISORDIL SL [Concomitant]
     Indication: Chest pain
     Dosage: 5 MG, PRN (SL 1 TAB)
     Route: 065
  6. ALCOHOL [Concomitant]
     Active Substance: ALCOHOL
     Indication: Product used for unknown indication
     Dosage: 30 ML, BID (M E)
     Route: 065
  7. AMIODARONE [Concomitant]
     Active Substance: AMIODARONE
     Indication: Product used for unknown indication
     Dosage: 200 MG (? TAB 1 PC MONDAY AND FRIDAY)
     Route: 048
  8. BISOPROLOL [Concomitant]
     Active Substance: BISOPROLOL
     Indication: Product used for unknown indication
     Dosage: 2.5 MG (? TAB, 1 PC)
     Route: 048
  9. FUROSEMIDE [Concomitant]
     Active Substance: FUROSEMIDE
     Indication: Oedema
     Dosage: 40 MG, PRN (1/4 TAB)
     Route: 048
  10. OMEPRAZOLE [Concomitant]
     Active Substance: OMEPRAZOLE
     Indication: Product used for unknown indication
     Dosage: 20 MG (1 CAP, 2 AC 1/2)
     Route: 048
  11. WARFARIN [Concomitant]
     Active Substance: WARFARIN
     Indication: Product used for unknown indication
     Dosage: 3 MG (1 TAB, HS)
     Route: 048
  12. WARFARIN [Concomitant]
     Active Substance: WARFARIN
     Dosage: 2 MG (1/2 TAB, HS FROM MONDAY TO SATURDAY)
     Route: 048
  13. WARFARIN [Concomitant]
     Active Substance: WARFARIN
     Dosage: 2 MG (1/2 TAB, HS FROM MONDAY TO FRIDAY)
     Route: 048
  14. INSULIN ASPART [Concomitant]
     Active Substance: INSULIN ASPART
     Indication: Product used for unknown indication
     Dosage: BIPHASIC INSULIN ASPART 30 (FLEXPEN) SC 25 UNIT AC IMMEDIATELY M, SC 14 UNIT
     Route: 058
  15. INSULIN ASPART [Concomitant]
     Active Substance: INSULIN ASPART
     Dosage: BIPHASIC INSULIN ASPART 30 (FLEXPEN) SC 28 UNIT AC IMMEDIATELY M, SC 18 UNIT
     Route: 058
  16. METFORMIN [Concomitant]
     Active Substance: METFORMIN HYDROCHLORIDE
     Indication: Product used for unknown indication
     Dosage: 500 MG, QD (1 TAB, 1 PC)
     Route: 048

REACTIONS (15)
  - Ischaemic cardiomyopathy [Unknown]
  - Type 2 diabetes mellitus [Unknown]
  - Ventricular flutter [Unknown]
  - Ventricular fibrillation [Unknown]
  - Atrial fibrillation [Unknown]
  - Hypotension [Unknown]
  - Lipoprotein metabolism disorder [Unknown]
  - Essential hypertension [Unknown]
  - Blood glucose increased [Unknown]
  - Glomerular filtration rate decreased [Unknown]
  - Prothrombin time prolonged [Unknown]
  - International normalised ratio increased [Unknown]
  - Atrial flutter [Unknown]
  - Body mass index increased [Unknown]
  - Wrong technique in product usage process [Unknown]

NARRATIVE: CASE EVENT DATE: 20220224
